FAERS Safety Report 7703416-0 (Version None)
Quarter: 2011Q3

REPORT INFORMATION
  Report Type: 
  Country: None (occurrence: None)
  Receive Date: 20110823
  Receipt Date: 20110823
  Transmission Date: 20111222
  Serious: Yes (Other)
  Sender: FDA-Public Use
  Company Number: None

PATIENT
  Sex: Male
  Weight: 102.05 kg

DRUGS (1)
  1. LIDODERM [Suspect]
     Indication: COMPLEX REGIONAL PAIN SYNDROME
     Dosage: 1 PATCH
     Route: 062
     Dates: start: 20110820, end: 20110820

REACTIONS (8)
  - DIZZINESS [None]
  - LOSS OF CONSCIOUSNESS [None]
  - ABASIA [None]
  - BLOOD PRESSURE DECREASED [None]
  - DYSARTHRIA [None]
  - BLOOD GLUCOSE INCREASED [None]
  - HYPERHIDROSIS [None]
  - SOMNOLENCE [None]
